FAERS Safety Report 22807024 (Version 3)
Quarter: 2023Q4

REPORT INFORMATION
  Report Type: Spontaneous
  Country: US (occurrence: US)
  Receive Date: 20230810
  Receipt Date: 20231124
  Transmission Date: 20240109
  Serious: Yes (Death, Life-Threatening, Hospitalization, Other)
  Sender: FDA-Public Use
  Company Number: US-Hikma Pharmaceuticals USA Inc.-US-H14001-23-02093

PATIENT
  Age: 69 Year
  Sex: Female
  Weight: 64 kg

DRUGS (64)
  1. FLUOROURACIL [Suspect]
     Active Substance: FLUOROURACIL
     Dosage: 1600 MILLIGRAM, SINGLE
     Route: 041
     Dates: start: 20220831
  2. FLUOROURACIL [Suspect]
     Active Substance: FLUOROURACIL
     Dosage: 1600 MILLIGRAM, SINGLE
     Route: 041
     Dates: start: 20221130
  3. FLUOROURACIL [Suspect]
     Active Substance: FLUOROURACIL
     Dosage: 1600 MILLIGRAM, SINGLE
     Route: 041
     Dates: start: 20221214
  4. FLUOROURACIL [Suspect]
     Active Substance: FLUOROURACIL
     Dosage: 1600 MILLIGRAM, SINGLE
     Route: 041
     Dates: start: 20221228
  5. FLUOROURACIL [Suspect]
     Active Substance: FLUOROURACIL
     Dosage: 1600 MILLIGRAM, SINGLE
     Route: 041
     Dates: start: 20230111
  6. FLUOROURACIL [Suspect]
     Active Substance: FLUOROURACIL
     Dosage: 2400 MILLIGRAM, SINGLE
     Route: 041
     Dates: start: 20220831
  7. FLUOROURACIL [Suspect]
     Active Substance: FLUOROURACIL
     Dosage: 2400 MILLIGRAM, SINGLE
     Route: 041
     Dates: start: 20221019
  8. FLUOROURACIL [Suspect]
     Active Substance: FLUOROURACIL
     Dosage: 265 MILLIGRAM, SINGLE
     Route: 040
     Dates: start: 20221109
  9. FLUOROURACIL [Suspect]
     Active Substance: FLUOROURACIL
     Dosage: 3187 MILLIGRAM, SINGLE
     Route: 041
     Dates: start: 20220929
  10. FLUOROURACIL [Suspect]
     Active Substance: FLUOROURACIL
     Dosage: 3984 MILLIGRAM, SINGLE
     Route: 041
     Dates: start: 20220831, end: 20220831
  11. FLUOROURACIL [Suspect]
     Active Substance: FLUOROURACIL
     Dosage: 400 MILLIGRAM, SINGLE
     Route: 040
     Dates: start: 20221019
  12. FLUOROURACIL [Suspect]
     Active Substance: FLUOROURACIL
     Dosage: 400 MILLIGRAM, SINGLE
     Route: 040
     Dates: start: 20221019
  13. FLUOROURACIL [Suspect]
     Active Substance: FLUOROURACIL
     Dosage: 531 MILLIGRAM, SINGLE
     Route: 040
     Dates: start: 20220929
  14. FLUOROURACIL [Suspect]
     Active Substance: FLUOROURACIL
     Indication: Colorectal cancer
     Dosage: 664 MILLIGRAM, SINGLE
     Route: 040
     Dates: start: 20220831, end: 20220831
  15. ETRUMADENANT [Suspect]
     Active Substance: ETRUMADENANT
     Indication: Colorectal cancer
     Dosage: 150 MILLIGRAM, SINGLE
     Route: 048
     Dates: start: 20220831, end: 20220907
  16. ETRUMADENANT [Suspect]
     Active Substance: ETRUMADENANT
     Dosage: 150 MILLIGRAM, SINGLE
     Route: 048
     Dates: start: 20220907, end: 20220919
  17. ETRUMADENANT [Suspect]
     Active Substance: ETRUMADENANT
     Dosage: 150 MILLIGRAM, SINGLE
     Route: 048
     Dates: start: 20221130, end: 20221227
  18. ETRUMADENANT [Suspect]
     Active Substance: ETRUMADENANT
     Dosage: 150 MILLIGRAM, SINGLE
     Route: 048
     Dates: start: 20230111, end: 20230124
  19. ETRUMADENANT [Suspect]
     Active Substance: ETRUMADENANT
     Dosage: 150 MILLIGRAM, SINGLE
     Route: 065
     Dates: start: 20221019, end: 20221123
  20. BEVACIZUMAB [Suspect]
     Active Substance: BEVACIZUMAB
     Dosage: 300 MILLIGRAM, SINGLE
     Route: 041
     Dates: start: 20221019
  21. BEVACIZUMAB [Suspect]
     Active Substance: BEVACIZUMAB
     Dosage: 300 MILLIGRAM, SINGLE
     Route: 041
     Dates: start: 20221019
  22. BEVACIZUMAB [Suspect]
     Active Substance: BEVACIZUMAB
     Dosage: 300 MILLIGRAM, SINGLE
     Route: 041
     Dates: start: 20221109
  23. BEVACIZUMAB [Suspect]
     Active Substance: BEVACIZUMAB
     Dosage: 300 MILLIGRAM, SINGLE
     Route: 041
     Dates: start: 20221130
  24. BEVACIZUMAB [Suspect]
     Active Substance: BEVACIZUMAB
     Dosage: 300 MILLIGRAM, SINGLE
     Route: 041
     Dates: start: 20221214
  25. BEVACIZUMAB [Suspect]
     Active Substance: BEVACIZUMAB
     Dosage: 300 MILLIGRAM, SINGLE
     Route: 041
     Dates: start: 20221228
  26. BEVACIZUMAB [Suspect]
     Active Substance: BEVACIZUMAB
     Dosage: 300 MILLIGRAM, SINGLE
     Route: 041
     Dates: start: 20230111
  27. BEVACIZUMAB [Suspect]
     Active Substance: BEVACIZUMAB
     Indication: Colorectal cancer
     Dosage: 317 MILLIGRAM, SINGLE
     Route: 041
     Dates: start: 20220831
  28. BEVACIZUMAB [Suspect]
     Active Substance: BEVACIZUMAB
     Dosage: 317 MILLIGRAM, SINGLE
     Route: 041
     Dates: start: 20220929
  29. LEUCOVORIN [Suspect]
     Active Substance: LEUCOVORIN\LEUCOVORIN CALCIUM
     Indication: Colorectal cancer
     Dosage: 400 MILLIGRAM, SINGLE
     Route: 042
     Dates: start: 20220831, end: 20220831
  30. LEUCOVORIN [Suspect]
     Active Substance: LEUCOVORIN\LEUCOVORIN CALCIUM
     Dosage: 99 MILLIGRAM, SINGLE
     Route: 041
     Dates: start: 20221019
  31. LEUCOVORIN [Suspect]
     Active Substance: LEUCOVORIN\LEUCOVORIN CALCIUM
     Dosage: 99 MILLIGRAM, SINGLE
     Route: 041
     Dates: start: 20221019
  32. LEUCOVORIN [Suspect]
     Active Substance: LEUCOVORIN\LEUCOVORIN CALCIUM
     Dosage: 99 MILLIGRAM, SINGLE
     Route: 041
     Dates: start: 20221109
  33. LEUCOVORIN [Suspect]
     Active Substance: LEUCOVORIN\LEUCOVORIN CALCIUM
     Dosage: 99 MILLIGRAM, SINGLE
     Route: 065
     Dates: start: 20220929
  34. OXALIPLATIN [Suspect]
     Active Substance: OXALIPLATIN
     Dosage: 112 MILLIGRAM, SINGLE
     Route: 041
     Dates: start: 20220929
  35. OXALIPLATIN [Suspect]
     Active Substance: OXALIPLATIN
     Indication: Colorectal cancer
     Dosage: 141 MILLIGRAM, SINGLE
     Route: 041
     Dates: start: 20220831, end: 20220831
  36. OXALIPLATIN [Suspect]
     Active Substance: OXALIPLATIN
     Dosage: 57.5 MILLIGRAM, SINGLE
     Route: 041
     Dates: start: 20221019
  37. OXALIPLATIN [Suspect]
     Active Substance: OXALIPLATIN
     Dosage: 57.5 MILLIGRAM, SINGLE
     Route: 041
     Dates: start: 20221109
  38. OXALIPLATIN [Suspect]
     Active Substance: OXALIPLATIN
     Dosage: 57.5 MILLIGRAM, SINGLE
     Route: 041
     Dates: start: 20221130
  39. OXALIPLATIN [Suspect]
     Active Substance: OXALIPLATIN
     Dosage: 57.5 MILLIGRAM, SINGLE
     Route: 041
     Dates: start: 20221214
  40. OXALIPLATIN [Suspect]
     Active Substance: OXALIPLATIN
     Dosage: 57.5 MILLIGRAM, SINGLE
     Route: 041
     Dates: start: 20221228
  41. OXALIPLATIN [Suspect]
     Active Substance: OXALIPLATIN
     Dosage: 57.5 MILLIGRAM, SINGLE
     Route: 041
     Dates: start: 20230111
  42. OXALIPLATIN [Suspect]
     Active Substance: OXALIPLATIN
     Dosage: 85 MILLIGRAM, SINGLE
     Route: 041
     Dates: start: 20221019
  43. ZIMBERELIMAB [Suspect]
     Active Substance: ZIMBERELIMAB
     Indication: Colorectal cancer
     Dosage: 480 MILLIGRAM, SINGLE
     Route: 041
     Dates: start: 20220831, end: 20220831
  44. ZIMBERELIMAB [Suspect]
     Active Substance: ZIMBERELIMAB
     Dosage: 480 MILLIGRAM, SINGLE
     Route: 041
     Dates: start: 20221019
  45. ZIMBERELIMAB [Suspect]
     Active Substance: ZIMBERELIMAB
     Dosage: 480 MILLIGRAM, SINGLE
     Route: 041
     Dates: start: 20221130
  46. ZIMBERELIMAB [Suspect]
     Active Substance: ZIMBERELIMAB
     Dosage: 480 MILLIGRAM, SINGLE
     Route: 041
     Dates: start: 20221228
  47. ADDERALL [Concomitant]
     Active Substance: AMPHETAMINE ASPARTATE\AMPHETAMINE SULFATE\DEXTROAMPHETAMINE SACCHARATE\DEXTROAMPHETAMINE SULFATE
     Indication: Product used for unknown indication
     Dosage: UNKNOWN
     Route: 065
  48. AMCAL PROCHLORPERAZINE [Concomitant]
     Indication: Product used for unknown indication
     Dosage: UNKNOWN
     Route: 065
  49. ATIVAN [Concomitant]
     Active Substance: LORAZEPAM
     Indication: Product used for unknown indication
     Dosage: UNKNOWN
     Route: 065
  50. COLESTID [Concomitant]
     Active Substance: COLESTIPOL HYDROCHLORIDE
     Indication: Product used for unknown indication
     Dosage: UNKNOWN
     Route: 065
  51. COMPAZINE [Concomitant]
     Active Substance: PROCHLORPERAZINE MALEATE
     Indication: Product used for unknown indication
     Dosage: UNKNOWN
     Route: 065
  52. DECADRON [Concomitant]
     Active Substance: DEXAMETHASONE
     Indication: Product used for unknown indication
     Dosage: UNKNOWN
     Route: 065
  53. IBUPROFEN [Concomitant]
     Active Substance: IBUPROFEN
     Indication: Product used for unknown indication
     Dosage: UNKNOWN
     Route: 065
  54. IMODIUM [Concomitant]
     Active Substance: LOPERAMIDE HYDROCHLORIDE
     Indication: Product used for unknown indication
     Dosage: UNKNOWN
     Route: 065
  55. LEVOTHYROXINE [Concomitant]
     Active Substance: LEVOTHYROXINE
     Indication: Product used for unknown indication
     Dosage: UNKNOWN
     Route: 065
  56. MS CONTIN [Concomitant]
     Active Substance: MORPHINE SULFATE
     Indication: Product used for unknown indication
     Dosage: UNKNOWN
     Route: 065
  57. NEURONTIN [Concomitant]
     Active Substance: GABAPENTIN
     Indication: Product used for unknown indication
     Dosage: UNKNOWN
     Route: 065
  58. PERCOCET [Concomitant]
     Active Substance: ACETAMINOPHEN\OXYCODONE HYDROCHLORIDE
     Indication: Product used for unknown indication
     Dosage: UNKNOWN
     Route: 065
  59. POTASSIUM CHLORIDE [Concomitant]
     Active Substance: POTASSIUM CHLORIDE
     Indication: Product used for unknown indication
     Dosage: UNKNOWN
     Route: 065
  60. POTASSIUM CHLORIDE;GLUCOSE [Concomitant]
     Indication: Product used for unknown indication
     Dosage: UNKNOWN
     Route: 065
  61. SYNTHROID [Concomitant]
     Active Substance: LEVOTHYROXINE SODIUM
     Indication: Product used for unknown indication
     Dosage: UNKNOWN
     Route: 065
     Dates: start: 20170913, end: 20230111
  62. TBO-FILGRASTIM [Concomitant]
     Active Substance: TBO-FILGRASTIM
     Indication: Product used for unknown indication
     Dosage: UNKNOWN
     Route: 065
  63. VENLAFAXINE [Concomitant]
     Active Substance: VENLAFAXINE HYDROCHLORIDE
     Indication: Product used for unknown indication
     Dosage: UNKNOWN
     Route: 065
  64. ZYPREXA [Concomitant]
     Active Substance: OLANZAPINE
     Indication: Product used for unknown indication
     Dosage: UNKNOWN
     Route: 065

REACTIONS (30)
  - Disease progression [Fatal]
  - Febrile neutropenia [Recovered/Resolved with Sequelae]
  - Fatigue [Recovered/Resolved]
  - Urine analysis abnormal [Unknown]
  - Body temperature increased [Unknown]
  - Platelet count decreased [Unknown]
  - Protein total abnormal [Unknown]
  - White blood cell count decreased [Recovered/Resolved]
  - Asthenia [Unknown]
  - Confusional state [Unknown]
  - Somnolence [Unknown]
  - Altered state of consciousness [Unknown]
  - Hypophosphataemia [Unknown]
  - Hypocalcaemia [Unknown]
  - Hypokalaemia [Unknown]
  - Leukopenia [Unknown]
  - Thrombocytopenia [Unknown]
  - Blood urea nitrogen/creatinine ratio increased [Unknown]
  - Haematocrit decreased [Unknown]
  - Haemoglobin decreased [Unknown]
  - Lymphocyte count decreased [Unknown]
  - Mean cell haemoglobin concentration decreased [Unknown]
  - Monocyte count decreased [Unknown]
  - Red blood cell count decreased [Unknown]
  - Pyrexia [Unknown]
  - Dehydration [Unknown]
  - Immunodeficiency [Unknown]
  - Lactic acidosis [Unknown]
  - Red blood cell count increased [Unknown]
  - Neutropenia [Unknown]

NARRATIVE: CASE EVENT DATE: 20220913
